FAERS Safety Report 19681666 (Version 1)
Quarter: 2021Q3

REPORT INFORMATION
  Report Type: Spontaneous
  Country: IN (occurrence: CO)
  Receive Date: 20210810
  Receipt Date: 20210810
  Transmission Date: 20211014
  Serious: Yes (Hospitalization, Other)
  Sender: FDA-Public Use
  Company Number: CO-ELI_LILLY_AND_COMPANY-CO202107009609

PATIENT
  Age: 35 Year
  Sex: Male

DRUGS (7)
  1. OLANZAPINE. [Suspect]
     Active Substance: OLANZAPINE
     Indication: CATATONIA
     Dosage: 20 MG, DAILY
     Route: 065
     Dates: end: 201803
  2. OLANZAPINE. [Suspect]
     Active Substance: OLANZAPINE
     Dosage: 20 MG, DAILY
     Route: 065
     Dates: start: 201910
  3. LACOSAMIDE. [Concomitant]
     Active Substance: LACOSAMIDE
     Indication: EPILEPSY
     Dosage: UNK, UNKNOWN
     Route: 065
  4. PHENYTOIN. [Concomitant]
     Active Substance: PHENYTOIN
     Indication: EPILEPSY
     Dosage: UNK, UNKNOWN
     Route: 065
  5. OLANZAPINE. [Suspect]
     Active Substance: OLANZAPINE
     Indication: BEHAVIOUR DISORDER
     Dosage: UNK, UNKNOWN
     Route: 065
     Dates: start: 201909
  6. LEVETIRACETAM. [Concomitant]
     Active Substance: LEVETIRACETAM
     Indication: EPILEPSY
     Dosage: UNK, UNKNOWN
     Route: 065
  7. VALPROIC ACID. [Concomitant]
     Active Substance: VALPROIC ACID
     Indication: EPILEPSY
     Dosage: UNK, UNKNOWN
     Route: 065

REACTIONS (2)
  - Neuroleptic malignant syndrome [Recovered/Resolved]
  - Aggression [Unknown]

NARRATIVE: CASE EVENT DATE: 2018
